FAERS Safety Report 23498218 (Version 1)
Quarter: 2024Q1

REPORT INFORMATION
  Report Type: Spontaneous
  Country: US (occurrence: None)
  Receive Date: 20240207
  Receipt Date: 20240207
  Transmission Date: 20240409
  Serious: No
  Sender: FDA-Public Use
  Company Number: US-ROCHE-3252206

PATIENT

DRUGS (3)
  1. XOLAIR [Suspect]
     Active Substance: OMALIZUMAB
     Indication: Urticaria chronic
     Route: 065
  2. XOLAIR [Suspect]
     Active Substance: OMALIZUMAB
     Indication: Angioedema
  3. XOLAIR [Suspect]
     Active Substance: OMALIZUMAB
     Indication: Pharyngeal swelling

REACTIONS (2)
  - Drug ineffective [Unknown]
  - No adverse event [Unknown]
